FAERS Safety Report 22393172 (Version 1)
Quarter: 2023Q2

REPORT INFORMATION
  Report Type: Other
  Country: CN (occurrence: None)
  Receive Date: 20230601
  Receipt Date: 20230601
  Transmission Date: 20230722
  Serious: Yes (Hospitalization)
  Sender: FDA-Public Use
  Company Number: CN-ROCHE-3359137

PATIENT
  Age: 3 Year
  Sex: Male

DRUGS (4)
  1. ALECTINIB [Suspect]
     Active Substance: ALECTINIB
     Indication: Metastatic glioma
     Route: 065
     Dates: start: 20210719
  2. ALECTINIB [Suspect]
     Active Substance: ALECTINIB
     Route: 065
  3. BEVACIZUMAB [Suspect]
     Active Substance: BEVACIZUMAB
     Indication: Metastatic glioma
     Route: 065
     Dates: start: 20210220
  4. TEMOZOLOMIDE [Suspect]
     Active Substance: TEMOZOLOMIDE
     Indication: Metastatic glioma
     Route: 065
     Dates: start: 20210220

REACTIONS (2)
  - Disease progression [Recovering/Resolving]
  - Drug resistance [Unknown]
